FAERS Safety Report 9384370 (Version 2)
Quarter: 2013Q3

REPORT INFORMATION
  Report Type: Report from Study
  Country: BR (occurrence: BR)
  Receive Date: 20130705
  Receipt Date: 20130906
  Transmission Date: 20140515
  Serious: Yes (Other)
  Sender: FDA-Public Use
  Company Number: PHHY2013BR069841

PATIENT
  Sex: Female
  Weight: 59 kg

DRUGS (9)
  1. EXELON PATCH [Suspect]
     Indication: MEMORY IMPAIRMENT
     Dosage: ONE PATCH DAILY
     Route: 062
  2. EXELON PATCH [Suspect]
     Dosage: UNK UKN, UNK
     Route: 062
     Dates: start: 201306
  3. ATACAND [Concomitant]
     Indication: HYPERTENSION
     Dosage: 1 DF, QD
     Route: 048
  4. SELOZOK [Concomitant]
     Indication: HYPERTENSION
     Dosage: 1 DF, QD
     Route: 048
  5. INDAPEN//INDAPAMIDE [Concomitant]
     Indication: HYPERTENSION
     Dosage: 1 DF, QD
     Route: 048
  6. CITONEURIN                         /00176001/ [Concomitant]
     Indication: HYPERTENSION
     Dosage: 1 DF, QOD
     Route: 048
  7. MULTI-VIT [Concomitant]
     Indication: VITAMIN SUPPLEMENTATION
     Dosage: 1 DF, QD
     Route: 048
  8. SPIDUFEN [Concomitant]
     Indication: BONE PAIN
     Dosage: 1 DF, QD
     Route: 048
  9. HYALOGEL [Concomitant]
     Indication: DRY EYE
     Dosage: TWO APPLICATIONS

REACTIONS (1)
  - Dysentery [Recovered/Resolved]
